FAERS Safety Report 7933409-X (Version None)
Quarter: 2011Q4

REPORT INFORMATION
  Report Type: 
  Country: None (occurrence: None)
  Receive Date: 20111122
  Receipt Date: 20111122
  Transmission Date: 20120403
  Serious: No
  Sender: FDA-Public Use
  Company Number: None

PATIENT
  Age: 44 Year
  Sex: Female
  Weight: 69.399 kg

DRUGS (1)
  1. MIRENA [Suspect]
     Indication: MENORRHAGIA
     Dates: start: 20110313, end: 20111120

REACTIONS (8)
  - VISION BLURRED [None]
  - PELVIC PAIN [None]
  - GASTRIC DILATATION [None]
  - WEIGHT INCREASED [None]
  - BREAST CYST [None]
  - EAR PAIN [None]
  - SINUS HEADACHE [None]
  - MOOD SWINGS [None]
